FAERS Safety Report 13347812 (Version 2)
Quarter: 2017Q2

REPORT INFORMATION
  Report Type: Spontaneous
  Country: IN (occurrence: IN)
  Receive Date: 20170317
  Receipt Date: 20170403
  Transmission Date: 20170830
  Serious: Yes (Other)
  Sender: FDA-Public Use
  Company Number: IN-ABBVIE-17P-078-1909722-00

PATIENT
  Age: 9 Year
  Sex: Male

DRUGS (2)
  1. VALPARIN ALKALET [Suspect]
     Active Substance: VALPROATE SODIUM
     Indication: PRODUCT USED FOR UNKNOWN INDICATION
     Route: 065
     Dates: end: 20170118
  2. VALPARIN CHRONO [Suspect]
     Active Substance: VALPROIC ACID
     Indication: PRODUCT USED FOR UNKNOWN INDICATION
     Dosage: EXTENDED RELEASE
     Route: 065

REACTIONS (3)
  - Seizure [Recovering/Resolving]
  - Medication residue present [Unknown]
  - Weight increased [Unknown]

NARRATIVE: CASE EVENT DATE: 20170116
